FAERS Safety Report 10755374 (Version 1)
Quarter: 2015Q1

REPORT INFORMATION
  Report Type: Spontaneous
  Country: IN (occurrence: IN)
  Receive Date: 20150202
  Receipt Date: 20150202
  Transmission Date: 20150721
  Serious: Yes (Hospitalization, Other)
  Sender: FDA-Public Use
  Company Number: IN-PFIZER INC-2015036239

PATIENT
  Age: 30 Year
  Sex: Male

DRUGS (3)
  1. PREGABALIN. [Suspect]
     Active Substance: PREGABALIN
     Dosage: 3000 MG, DAILY
  2. PREGABALIN. [Suspect]
     Active Substance: PREGABALIN
     Dosage: 1500 MG, DAILY
  3. PREGABALIN. [Suspect]
     Active Substance: PREGABALIN
     Indication: NEURALGIA
     Dosage: 75 MG, UNK

REACTIONS (13)
  - Suicide attempt [Unknown]
  - Dysphoria [Unknown]
  - Drug abuse [Unknown]
  - Palpitations [Unknown]
  - Feelings of worthlessness [Unknown]
  - Euphoric mood [Unknown]
  - Drug tolerance [Unknown]
  - Anxiety [Unknown]
  - Suicidal ideation [Unknown]
  - Drug dependence [Unknown]
  - Drug withdrawal syndrome [Unknown]
  - Restlessness [Unknown]
  - Energy increased [Unknown]
